FAERS Safety Report 10942788 (Version 2)
Quarter: 2015Q1

REPORT INFORMATION
  Report Type: Spontaneous
  Country: US (occurrence: None)
  Receive Date: 20150212
  Receipt Date: 20150212
  Transmission Date: 20150721
  Serious: No
  Sender: FDA-Public Use
  Company Number: TPA2011A03812

PATIENT
  Age: 77 Year
  Sex: Male
  Weight: 77.57 kg

DRUGS (6)
  1. ULORIC [Suspect]
     Active Substance: FEBUXOSTAT
     Indication: GOUT
     Dosage: THERAPY DATES:  05/06/2011 - 07/MAY/2011 OR 08/MAY/2011,  40 MG, 1 IN 1 D, PER ORAL
     Route: 048
     Dates: start: 20110506, end: 20110507
  2. LISINOPRIL. [Concomitant]
     Active Substance: LISINOPRIL
  3. DYAZIDE (HYDROCHLOROTHIAZIDE, TRIAMTERENE) [Concomitant]
  4. OMEPRAZOLE. [Concomitant]
     Active Substance: OMEPRAZOLE
  5. AGGRENOX (ACETYLSALICYLIC ACID, DIPYRIDAMOLE) [Concomitant]
  6. VERAPAMIL [Concomitant]
     Active Substance: VERAPAMIL HYDROCHLORIDE

REACTIONS (4)
  - Swelling face [None]
  - Flushing [None]
  - Hypersensitivity [None]
  - Blood pressure increased [None]

NARRATIVE: CASE EVENT DATE: 20110507
